FAERS Safety Report 20702958 (Version 2)
Quarter: 2022Q2

REPORT INFORMATION
  Report Type: Spontaneous
  Country: JP (occurrence: JP)
  Receive Date: 20220413
  Receipt Date: 20220420
  Transmission Date: 20220721
  Serious: Yes (Death, Other)
  Sender: FDA-Public Use
  Company Number: JP-BRISTOL-MYERS SQUIBB COMPANY-2022-018272

PATIENT
  Age: 7 Decade

DRUGS (2)
  1. YERVOY [Suspect]
     Active Substance: IPILIMUMAB
     Indication: Renal cell carcinoma
     Dosage: 2 TIMES
     Route: 041
  2. OPDIVO [Suspect]
     Active Substance: NIVOLUMAB
     Indication: Renal cell carcinoma
     Dosage: 2 TIMES
     Route: 041

REACTIONS (3)
  - Pulmonary embolism [Fatal]
  - COVID-19 [Unknown]
  - Embolism venous [Unknown]
